FAERS Safety Report 5164475-5 (Version None)
Quarter: 2006Q4

REPORT INFORMATION
  Report Type: 
  Country: None (occurrence: None)
  Receive Date: 20061127
  Receipt Date: 20061127
  Transmission Date: 20070319
  Serious: Yes (Hospitalization)
  Sender: FDA-Public Use
  Company Number: None

PATIENT
  Age: 18 Year
  Sex: Female

DRUGS (6)
  1. CLOZAPINE [Suspect]
     Indication: SCHIZOAFFECTIVE DISORDER
     Dosage: 25MG DAILY PO
     Route: 048
     Dates: start: 20061009, end: 20061010
  2. OXCARBAZEPINE [Concomitant]
  3. PANTOPRAZOLE SODIUM [Concomitant]
  4. ESCITALOPRAM OXALATE [Concomitant]
  5. OLANZAPINE [Concomitant]
  6. LITHIUM CARBONATE [Concomitant]

REACTIONS (2)
  - GRAND MAL CONVULSION [None]
  - POSTICTAL STATE [None]
